FAERS Safety Report 8368361-9 (Version None)
Quarter: 2012Q2

REPORT INFORMATION
  Report Type: 
  Country: None (occurrence: None)
  Receive Date: 20120517
  Receipt Date: 20120508
  Transmission Date: 20120825
  Serious: Yes (Hospitalization)
  Sender: FDA-Public Use
  Company Number: ES-ELI_LILLY_AND_COMPANY-ES201205003921

PATIENT
  Sex: Female
  Weight: 68 kg

DRUGS (10)
  1. TEPAZEPAN [Concomitant]
     Indication: DEPRESSION
     Dosage: 50 MG, QD
     Route: 048
  2. FURANTOINA [Concomitant]
     Indication: ANTIBIOTIC THERAPY
     Dosage: 1 DF, QD
     Route: 048
  3. ASPIRIN [Concomitant]
     Indication: PERIPHERAL VASCULAR DISORDER
     Dosage: 300 MG, QD
     Route: 048
  4. CITALOPRAM HYDROBROMIDE [Concomitant]
     Indication: DEPRESSION
     Dosage: 30 MG, QD
     Route: 048
  5. NOLOTIL [Concomitant]
     Indication: ANALGESIC THERAPY
     Dosage: UNK, PRN
     Route: 048
  6. ENANTYUM [Concomitant]
     Indication: ANALGESIC THERAPY
     Dosage: 1 DF, BID
     Route: 048
     Dates: start: 20120404
  7. FORTEO [Suspect]
     Indication: OSTEOPOROSIS
     Dosage: 20 UG, QD
     Route: 058
     Dates: start: 20111122
  8. VALDOXAN [Concomitant]
     Indication: INSOMNIA
     Dosage: 25 MG, BID
     Route: 048
  9. NOCTAMID [Concomitant]
     Indication: INSOMNIA
     Dosage: 2 MG, QD
     Route: 048
  10. BENADON [Concomitant]
     Indication: VITAMIN B12 DEFICIENCY
     Dosage: 1 DF, QD
     Route: 048

REACTIONS (1)
  - TENDON RUPTURE [None]
